FAERS Safety Report 5233080-4 (Version None)
Quarter: 2007Q1

REPORT INFORMATION
  Report Type: 
  Country: None (occurrence: None)
  Receive Date: 20061201
  Receipt Date: 20060919
  Transmission Date: 20070707
  Serious: No
  Sender: FDA-Public Use
  Company Number: 2006PV021537

PATIENT
  Age: 54 Year
  Sex: Male
  Weight: 154.223 kg

DRUGS (4)
  1. BYETTA [Suspect]
     Indication: DIABETES MELLITUS NON-INSULIN-DEPENDENT
     Dosage: SEE IMAGE
     Route: 058
  2. AVANDIA [Concomitant]
  3. METFORMIN HCL [Concomitant]
  4. PRANDIN [Concomitant]

REACTIONS (1)
  - BLOOD GLUCOSE INCREASED [None]
